FAERS Safety Report 10920180 (Version 37)
Quarter: 2023Q2

REPORT INFORMATION
  Report Type: Report from Study
  Country: CA (occurrence: CA)
  Receive Date: 20150317
  Receipt Date: 20230517
  Transmission Date: 20230721
  Serious: Yes (Other)
  Sender: FDA-Public Use
  Company Number: PHHY2015CA028279

PATIENT
  Age: 2 Year
  Sex: Female

DRUGS (36)
  1. ILARIS [Suspect]
     Active Substance: CANAKINUMAB
     Indication: Muckle-Wells syndrome
     Dosage: 25 UNK EVERY 8 WEEKS
     Route: 058
     Dates: start: 20140525
  2. ILARIS [Suspect]
     Active Substance: CANAKINUMAB
     Dosage: 25 UNK, ONE TIME DOSE
     Route: 058
  3. ILARIS [Suspect]
     Active Substance: CANAKINUMAB
     Dosage: 50 MG, Q8 WEEKS
     Route: 058
  4. ILARIS [Suspect]
     Active Substance: CANAKINUMAB
     Dosage: 50 MG, EVERY 8 WEEKS
     Route: 058
  5. ILARIS [Suspect]
     Active Substance: CANAKINUMAB
     Dosage: 50 MG, Q8 WEEKS
     Route: 058
     Dates: start: 2014
  6. ILARIS [Suspect]
     Active Substance: CANAKINUMAB
     Dosage: UNK
     Route: 058
     Dates: start: 20150305
  7. ILARIS [Suspect]
     Active Substance: CANAKINUMAB
     Dosage: 50 MG, Q8 WEEKS
     Route: 058
     Dates: start: 20150625
  8. ILARIS [Suspect]
     Active Substance: CANAKINUMAB
     Dosage: 50 MG, Q8 WEEKS
     Route: 058
     Dates: start: 20151015
  9. ILARIS [Suspect]
     Active Substance: CANAKINUMAB
     Dosage: 50 MG, Q8 WEEKS
     Route: 058
     Dates: start: 20151210
  10. ILARIS [Suspect]
     Active Substance: CANAKINUMAB
     Dosage: UNK
     Route: 058
     Dates: start: 20160204
  11. ILARIS [Suspect]
     Active Substance: CANAKINUMAB
     Dosage: UNK
     Route: 058
     Dates: start: 20160328
  12. ILARIS [Suspect]
     Active Substance: CANAKINUMAB
     Dosage: 50 MG, Q8 WEEKS
     Route: 058
     Dates: start: 20160519
  13. ILARIS [Suspect]
     Active Substance: CANAKINUMAB
     Dosage: UNK
     Route: 058
     Dates: start: 20160714
  14. ILARIS [Suspect]
     Active Substance: CANAKINUMAB
     Dosage: UNK
     Route: 058
     Dates: start: 20160908
  15. ILARIS [Suspect]
     Active Substance: CANAKINUMAB
     Dosage: UNK
     Route: 058
  16. ILARIS [Suspect]
     Active Substance: CANAKINUMAB
     Dosage: UNK
     Route: 058
     Dates: start: 20161103
  17. ILARIS [Suspect]
     Active Substance: CANAKINUMAB
     Dosage: UNK
     Route: 058
     Dates: start: 20161229
  18. ILARIS [Suspect]
     Active Substance: CANAKINUMAB
     Dosage: UNK
     Route: 058
     Dates: start: 20170223
  19. ILARIS [Suspect]
     Active Substance: CANAKINUMAB
     Dosage: UNK
     Route: 065
     Dates: start: 20170420
  20. ILARIS [Suspect]
     Active Substance: CANAKINUMAB
     Dosage: UNK
     Route: 065
     Dates: start: 20170810
  21. ILARIS [Suspect]
     Active Substance: CANAKINUMAB
     Dosage: UNK
     Route: 065
     Dates: start: 20171006
  22. ILARIS [Suspect]
     Active Substance: CANAKINUMAB
     Dosage: UNK
     Route: 065
     Dates: start: 20171130
  23. ILARIS [Suspect]
     Active Substance: CANAKINUMAB
     Dosage: UNK
     Route: 065
     Dates: start: 20180125
  24. ILARIS [Suspect]
     Active Substance: CANAKINUMAB
     Dosage: UNK
     Route: 065
     Dates: start: 20180320
  25. ILARIS [Suspect]
     Active Substance: CANAKINUMAB
     Dosage: UNK
     Route: 065
     Dates: start: 20180320
  26. ILARIS [Suspect]
     Active Substance: CANAKINUMAB
     Dosage: 50 OT, EVERY 8 WEEKS
     Route: 058
     Dates: start: 20180517
  27. ILARIS [Suspect]
     Active Substance: CANAKINUMAB
     Dosage: 50 OT, EVERY 8 WEEKS
     Route: 058
     Dates: start: 20180712
  28. ILARIS [Suspect]
     Active Substance: CANAKINUMAB
     Dosage: 50 OT, EVERY 8 WEEKS
     Route: 058
     Dates: start: 20180906
  29. ILARIS [Suspect]
     Active Substance: CANAKINUMAB
     Dosage: 50 OT, 8 WEEKS
     Route: 058
     Dates: start: 20181101
  30. ILARIS [Suspect]
     Active Substance: CANAKINUMAB
     Dosage: 50 MG, EVERY 8 WEEKS
     Route: 058
     Dates: start: 20181227
  31. ILARIS [Suspect]
     Active Substance: CANAKINUMAB
     Dosage: 50 MG, EVERY 8 WEEKS
     Route: 058
     Dates: start: 20190221
  32. ILARIS [Suspect]
     Active Substance: CANAKINUMAB
     Dosage: 50 MG, EVERY 8 WEEKS
     Route: 058
     Dates: start: 20190613
  33. ILARIS [Suspect]
     Active Substance: CANAKINUMAB
     Dosage: 50 OT, EVERY 8 WEEKS
     Route: 058
     Dates: start: 20190808
  34. ILARIS [Suspect]
     Active Substance: CANAKINUMAB
     Dosage: 50 MG EVERY 8 WEEKS
     Route: 058
     Dates: start: 20191003
  35. ILARIS [Suspect]
     Active Substance: CANAKINUMAB
     Dosage: UNK
     Route: 058
     Dates: start: 20200318
  36. ILARIS [Suspect]
     Active Substance: CANAKINUMAB
     Dosage: UNK (49, 8 WEEKS)
     Route: 058
     Dates: start: 20200513

REACTIONS (6)
  - Blood pressure decreased [Unknown]
  - Cough [Recovered/Resolved]
  - Oral pain [Recovering/Resolving]
  - Oral herpes [Recovering/Resolving]
  - Muckle-Wells syndrome [Unknown]
  - Prescribed underdose [Unknown]

NARRATIVE: CASE EVENT DATE: 20150101
